FAERS Safety Report 8201087-0 (Version None)
Quarter: 2012Q1

REPORT INFORMATION
  Report Type: 
  Country: None (occurrence: None)
  Receive Date: 20120312
  Receipt Date: 20111206
  Transmission Date: 20120608
  Serious: No
  Sender: FDA-Public Use
  Company Number: US-ABBOTT-11P-163-0881761-00

PATIENT
  Sex: Female
  Weight: 113.5 kg

DRUGS (6)
  1. NAPRELAN [Concomitant]
     Indication: PRODUCT USED FOR UNKNOWN INDICATION
  2. LYSTEDA [Concomitant]
     Indication: PRODUCT USED FOR UNKNOWN INDICATION
  3. LUPRON DEPOT [Suspect]
     Indication: ENDOMETRIOSIS
  4. NORETHINDRONE [Concomitant]
     Indication: HORMONE REPLACEMENT THERAPY
     Dates: start: 20111101
  5. LUPRON DEPOT [Suspect]
     Indication: HAEMORRHAGE
     Dates: start: 20111101
  6. LUPRON DEPOT [Suspect]
     Indication: UTERINE LEIOMYOMA

REACTIONS (1)
  - HAEMORRHAGE [None]
